FAERS Safety Report 4807792-8 (Version None)
Quarter: 2005Q4

REPORT INFORMATION
  Report Type: 
  Country: None (occurrence: None)
  Receive Date: 20051021
  Receipt Date: 20050920
  Transmission Date: 20060501
  Serious: Yes (Hospitalization, Other)
  Sender: FDA-Public Use
  Company Number: US-0504115783

PATIENT
  Age: 49 Year
  Sex: Female
  Weight: 65 kg

DRUGS (4)
  1. ZYPREXA [Suspect]
     Indication: BIPOLAR DISORDER
     Dosage: 15 MG DAY
     Dates: start: 19981101, end: 20020801
  2. WELLBUTRIN [Concomitant]
  3. CELEXA [Concomitant]
  4. RISPERDAL [Concomitant]

REACTIONS (5)
  - DIABETES MELLITUS [None]
  - HYPERLIPIDAEMIA [None]
  - NORMOCHROMIC NORMOCYTIC ANAEMIA [None]
  - TRANSIENT ISCHAEMIC ATTACK [None]
  - WEIGHT INCREASED [None]
